FAERS Safety Report 4386852-2 (Version None)
Quarter: 2004Q2

REPORT INFORMATION
  Report Type: 
  Country: None (occurrence: None)
  Receive Date: 20040623
  Receipt Date: 20040604
  Transmission Date: 20050107
  Serious: Yes (Hospitalization)
  Sender: FDA-Public Use
  Company Number: USA030638832

PATIENT
  Age: 19 Year
  Sex: Male
  Weight: 70 kg

DRUGS (8)
  1. STRATTERA [Suspect]
     Indication: ATTENTION DEFICIT/HYPERACTIVITY DISORDER
     Dosage: 1200 MG OTHER
     Route: 050
  2. OLANZAPINE [Suspect]
  3. OXCARBAZEPINE [Concomitant]
  4. QUETIAPINE [Concomitant]
  5. PAROXETINE HCL [Concomitant]
  6. ALBUTEROL [Concomitant]
  7. MONTELUKAST [Concomitant]
  8. ATIVAN [Concomitant]

REACTIONS (28)
  - AGGRESSION [None]
  - AGITATION [None]
  - ALANINE AMINOTRANSFERASE INCREASED [None]
  - ALCOHOL USE [None]
  - ASPARTATE AMINOTRANSFERASE INCREASED [None]
  - CARDIAC MURMUR [None]
  - DEPRESSED LEVEL OF CONSCIOUSNESS [None]
  - DRUG SCREEN POSITIVE [None]
  - ELECTROCARDIOGRAM QT CORRECTED INTERVAL PROLONGED [None]
  - EXCORIATION [None]
  - HAEMATOCRIT DECREASED [None]
  - HALLUCINATION, AUDITORY [None]
  - HALLUCINATION, VISUAL [None]
  - HEAD BANGING [None]
  - HEART RATE INCREASED [None]
  - INTENTIONAL SELF-INJURY [None]
  - LACERATION [None]
  - MULTIPLE DRUG OVERDOSE [None]
  - MYDRIASIS [None]
  - NEUROLOGICAL EXAMINATION ABNORMAL [None]
  - RESPIRATORY RATE INCREASED [None]
  - SCRATCH [None]
  - SELF INJURIOUS BEHAVIOUR [None]
  - SOMNOLENCE [None]
  - SUICIDAL IDEATION [None]
  - SUICIDE ATTEMPT [None]
  - VOMITING [None]
  - WHITE BLOOD CELL COUNT DECREASED [None]
